FAERS Safety Report 7257988-3 (Version None)
Quarter: 2011Q1

REPORT INFORMATION
  Report Type: 
  Country: None (occurrence: None)
  Receive Date: 20110129
  Receipt Date: 20100609
  Transmission Date: 20110831
  Serious: No
  Sender: FDA-Public Use
  Company Number: US-ABBOTT-10P-163-0651459-00

PATIENT
  Sex: Male
  Weight: 54.026 kg

DRUGS (6)
  1. BONIVA [Concomitant]
     Indication: OSTEOPOROSIS
  2. FORTICAL [Concomitant]
     Indication: OSTEOPOROSIS
     Dosage: NASAL SPRAY ONCE DAILY
     Route: 045
  3. MULTI-VITAMIN [Concomitant]
     Indication: PRODUCT USED FOR UNKNOWN INDICATION
  4. HUMIRA [Suspect]
     Indication: RHEUMATOID ARTHRITIS
     Dates: start: 20070101
  5. HUMIRA [Suspect]
     Indication: PSORIATIC ARTHROPATHY
  6. SIMVASTATIN [Concomitant]
     Indication: BLOOD CHOLESTEROL INCREASED

REACTIONS (2)
  - PRURITUS [None]
  - PARAESTHESIA [None]
